FAERS Safety Report 9121432 (Version 2)
Quarter: 2013Q2

REPORT INFORMATION
  Report Type: Spontaneous
  Country: US (occurrence: US)
  Receive Date: 20130225
  Receipt Date: 20130405
  Transmission Date: 20140414
  Serious: Yes (Other)
  Sender: FDA-Public Use
  Company Number: PHEH2013US004481

PATIENT
  Age: 35 Year
  Sex: Female
  Weight: 131.52 kg

DRUGS (12)
  1. GILENYA [Suspect]
     Indication: MULTIPLE SCLEROSIS
     Dosage: 0.5 MG, QD
     Route: 048
     Dates: start: 20130220, end: 20130225
  2. PANTOPRAZOLE [Concomitant]
     Dosage: 40 MG, UNK
  3. CYCLOBENZAPRINE [Concomitant]
     Dosage: 10 MG, UNK
  4. PHENTERMINE [Concomitant]
     Dosage: 37.5 MG, UNK
  5. LYRICA [Concomitant]
     Dosage: 200 MG, UNK
  6. CITALOPRAM [Concomitant]
     Dosage: 40 MG, UNK
  7. BUPROPION HCL [Concomitant]
     Dosage: 35 MG, UNK
  8. SEROQUEL [Concomitant]
     Indication: MENTAL DISORDER
     Dosage: 100 MG, BID
     Route: 048
  9. VALIUM [Concomitant]
     Indication: MENTAL DISORDER
     Dosage: 10 MG, Q 12
     Route: 048
  10. TOPAMAX [Concomitant]
     Indication: MIGRAINE
     Dosage: 100 MG, Q 12
     Route: 048
  11. WELLBUTRIN [Concomitant]
     Indication: DEPRESSION
     Dosage: 75 MG, Q 12
     Route: 048
  12. FLEXERIL [Concomitant]
     Indication: PAIN
     Dosage: 10 MG, TID
     Route: 048

REACTIONS (7)
  - Balance disorder [Unknown]
  - Heart rate increased [Unknown]
  - Erythema [Unknown]
  - Chest pain [Unknown]
  - Nausea [Recovered/Resolved]
  - Feeling abnormal [Recovered/Resolved]
  - Hypoaesthesia [Recovered/Resolved]
